FAERS Safety Report 8192222-1 (Version None)
Quarter: 2012Q1

REPORT INFORMATION
  Report Type: 
  Country: None (occurrence: None)
  Receive Date: 20120307
  Receipt Date: 20120227
  Transmission Date: 20120608
  Serious: Yes (Hospitalization)
  Sender: FDA-Public Use
  Company Number: IT-ROCHE-1046053

PATIENT
  Sex: Female

DRUGS (7)
  1. TORADOL [Suspect]
     Indication: TORTICOLLIS
     Route: 030
     Dates: start: 20120201, end: 20120207
  2. METFORAL [Concomitant]
     Dates: start: 20000101, end: 20120209
  3. RAMIPRIL [Concomitant]
     Dates: start: 20050201, end: 20120209
  4. ASCRIPTIN (ITALY) [Suspect]
     Indication: PLATELET AGGREGATION INHIBITION
     Route: 048
     Dates: start: 20040101, end: 20120209
  5. MUSCORIL [Concomitant]
     Dates: start: 20120201, end: 20120207
  6. VASERETIC [Concomitant]
     Dates: start: 20090209, end: 20120209
  7. KETOPROFEN [Suspect]
     Indication: EXERTIONAL HEADACHE
     Route: 048
     Dates: start: 20120206, end: 20120207

REACTIONS (2)
  - GASTRIC ULCER [None]
  - MELAENA [None]
